FAERS Safety Report 8264247-9 (Version None)
Quarter: 2012Q2

REPORT INFORMATION
  Report Type: 
  Country: None (occurrence: None)
  Receive Date: 20120406
  Receipt Date: 20120328
  Transmission Date: 20120825
  Serious: Yes (Hospitalization)
  Sender: FDA-Public Use
  Company Number: FR-JNJFOC-20120302970

PATIENT
  Age: 18 Year
  Sex: Female
  Weight: 57 kg

DRUGS (5)
  1. PREDNISOLONE [Concomitant]
     Indication: CROHN'S DISEASE
     Dosage: QD
     Route: 065
     Dates: start: 20111031
  2. ACETAMINOPHEN [Concomitant]
     Indication: CROHN'S DISEASE
     Route: 065
     Dates: start: 20111120
  3. REMICADE [Suspect]
     Indication: CROHN'S DISEASE
     Route: 042
     Dates: start: 20120118, end: 20120206
  4. TRAMADOL HCL [Concomitant]
     Indication: CROHN'S DISEASE
     Dosage: TID
     Route: 065
     Dates: start: 20111120
  5. ISOPTIN [Concomitant]
     Indication: PALPITATIONS
     Dosage: QD
     Route: 065
     Dates: start: 20120129

REACTIONS (4)
  - OXYGEN SATURATION DECREASED [None]
  - BRONCHOSPASM [None]
  - INFUSION RELATED REACTION [None]
  - HYPERSENSITIVITY [None]
